FAERS Safety Report 9215109 (Version 1)
Quarter: 2013Q2

REPORT INFORMATION
  Report Type: Spontaneous
  Country: US (occurrence: US)
  Receive Date: 20130405
  Receipt Date: 20130405
  Transmission Date: 20140414
  Serious: Yes (Other)
  Sender: FDA-Public Use
  Company Number: US-ASTRAZENECA-2013SE21037

PATIENT
  Age: 42 Year
  Sex: Male
  Weight: 79.4 kg

DRUGS (3)
  1. SEROQUEL [Suspect]
     Indication: BIPOLAR DISORDER
     Route: 048
  2. SEROQUEL [Suspect]
     Indication: SCHIZOAFFECTIVE DISORDER
     Route: 048
  3. NOT REPORTED [Concomitant]

REACTIONS (7)
  - Intestinal obstruction [Unknown]
  - Pica [Unknown]
  - Visual impairment [Unknown]
  - Adverse event [Unknown]
  - Abdominal distension [Unknown]
  - Adverse drug reaction [Unknown]
  - Weight increased [Unknown]
